FAERS Safety Report 9153616 (Version 2)
Quarter: 2013Q1

REPORT INFORMATION
  Report Type: Spontaneous
  Country: JP (occurrence: None)
  Receive Date: 20130204
  Receipt Date: 20130212
  Transmission Date: 20140127
  Serious: Yes (Life-Threatening, Hospitalization, Other)
  Sender: FDA-Public Use
  Company Number: DSJ-2013-01568

PATIENT
  Age: 52 Year
  Sex: Male
  Weight: 53 kg

DRUGS (17)
  1. OLMETEC (OLMESARTAN MEDOXOMIL) (TABLET) (OLMESARTAN MEDOXOMIL) [Suspect]
     Indication: HYPERTENSION
     Route: 048
     Dates: start: 20120123, end: 20130121
  2. ARTIST [Suspect]
     Indication: HYPERTENSION
     Route: 048
     Dates: start: 20110822, end: 20130121
  3. BAYASPIRIN [Suspect]
     Indication: PRODUCT USED FOR UNKNOWN INDICATION
     Dates: end: 20130121
  4. PROTECADIN [Suspect]
     Indication: GASTRIC ULCER
     Dates: start: 20100908, end: 20130121
  5. ALLOPURINOL [Suspect]
     Indication: HYPERURICAEMIA
     Dates: end: 20130121
  6. NIFEDIPINE [Suspect]
     Indication: HYPERTENSION
     Dates: start: 20110822, end: 20130121
  7. AMLODIPINE [Suspect]
     Indication: HYPERTENSION
     Dosage: 5 MG, 1 IN 1 D, UNKNOWN
     Dates: end: 20121030
  8. WYTENSIN [Suspect]
     Indication: HYPERTENSION
     Dosage: 4 MG, 1 IN 1 D, UNKNOWN
     Dates: end: 20121202
  9. REGPARA [Suspect]
     Indication: HYPERPARATHYROIDISM
     Dosage: 75 MG, 1 IN 1 D, UNKNOWN
     Dates: start: 20080723, end: 20121127
  10. CALTAN (CALCIUM CARBONATE) (CALCIUM CARBONATE) [Concomitant]
  11. CHOLEBINE (COLESTILAN) (COLESTILAN) [Concomitant]
  12. ARGAMATE (CALCIUM POLYSTYRENE SULFONATE) (CALCIUM POLYSTYRENE SULFONATE) [Concomitant]
  13. FOSRENOL (LANTHANUM CARBONATE) (CHEWABLE TABLET) (LANTHANUM CARBONATE) [Concomitant]
  14. RENAGEL (SEVELAMER HYDROCHLORIDE) (SEVELAMER HYDROCHLORIDE) [Concomitant]
  15. OXAROL (MAXACALCITOL) (MAXAXALCITOL) [Concomitant]
  16. MIRCERA (PEGZEREPOETIN ALFA) (PEGZEREPOETIN ALFA) [Concomitant]
  17. CRAVIT (LEVOFLOXACIN) (TABLET) (LEVOFLOXACIN) [Concomitant]

REACTIONS (3)
  - Thrombocytopenia [None]
  - Hepatitis cholestatic [None]
  - Eosinophilia [None]
